FAERS Safety Report 8992362 (Version 2)
Quarter: 2014Q1

REPORT INFORMATION
  Report Type: Spontaneous
  Country: HR (occurrence: HR)
  Receive Date: 20121231
  Receipt Date: 20140227
  Transmission Date: 20141002
  Serious: Yes (Death, Hospitalization, Other)
  Sender: FDA-Public Use
  Company Number: HR-JNJFOC-20121209322

PATIENT
  Age: 73 Year
  Sex: Female
  Weight: 63 kg

DRUGS (6)
  1. EPREX [Suspect]
     Indication: NEPHROGENIC ANAEMIA
     Dosage: AT A FREQUENCY OF ^QS^ (SIC).
     Dates: start: 20090414
  2. TRAMADOL HYDROCHLORIDE [Suspect]
     Indication: PRODUCT USED FOR UNKNOWN INDICATION
     Dosage: 100 MG DAILY
     Route: 065
  3. SIMVASTATIN [Concomitant]
     Indication: PRODUCT USED FOR UNKNOWN INDICATION
     Route: 065
     Dates: start: 20070115, end: 20111019
  4. CALCIUM CARBONATE [Concomitant]
     Indication: PRODUCT USED FOR UNKNOWN INDICATION
     Route: 065
     Dates: start: 20070130, end: 20111019
  5. NIFEDIPINE [Concomitant]
     Indication: PRODUCT USED FOR UNKNOWN INDICATION
     Route: 065
     Dates: start: 20070118, end: 20111019
  6. DIAZEPAM [Concomitant]
     Route: 065
     Dates: start: 201107, end: 20111019

REACTIONS (10)
  - Death [Fatal]
  - Cardiac failure congestive [Unknown]
  - Gangrene [Recovered/Resolved with Sequelae]
  - Dehydration [Recovered/Resolved]
  - Atrial fibrillation [Unknown]
  - Hypertension [Unknown]
  - Cardiomyopathy [Unknown]
  - Renal failure chronic [Unknown]
  - Arteriosclerosis [Unknown]
  - Cardiac disorder [Unknown]
